FAERS Safety Report 17760642 (Version 1)
Quarter: 2020Q2

REPORT INFORMATION
  Report Type: Spontaneous
  Country: US (occurrence: US)
  Receive Date: 20200508
  Receipt Date: 20200508
  Transmission Date: 20200714
  Serious: Yes (Hospitalization)
  Sender: FDA-Public Use
  Company Number: None

PATIENT
  Age: 76 Year
  Sex: Male
  Weight: 76.5 kg

DRUGS (15)
  1. TYLENOL ARTHRITIS PAIN [Concomitant]
     Active Substance: ACETAMINOPHEN
  2. DEXILAN [Concomitant]
  3. ZETIA [Concomitant]
     Active Substance: EZETIMIBE
  4. ROPINIROLE. [Concomitant]
     Active Substance: ROPINIROLE
  5. METOPROLOL TARTRATE. [Concomitant]
     Active Substance: METOPROLOL TARTRATE
  6. GADAVIST [Suspect]
     Active Substance: GADOBUTROL
     Dates: start: 20200506, end: 20200506
  7. MULTIVITAMIN FOR MEN [Concomitant]
  8. PLAVIX [Concomitant]
     Active Substance: CLOPIDOGREL BISULFATE
  9. NASONEX [Concomitant]
     Active Substance: MOMETASONE FUROATE
  10. OMEGA 3 [Concomitant]
     Active Substance: OMEGA-3 FATTY ACIDS
  11. BABY ASPIRIN [Concomitant]
     Active Substance: ASPIRIN
  12. BENADRYL [Concomitant]
     Active Substance: DIPHENHYDRAMINE HYDROCHLORIDE
  13. LORAZEPAM. [Concomitant]
     Active Substance: LORAZEPAM
  14. NITROGLYCERIN. [Concomitant]
     Active Substance: NITROGLYCERIN
  15. SERTRALINE [Concomitant]
     Active Substance: SERTRALINE HYDROCHLORIDE

REACTIONS (5)
  - Dyspnoea [None]
  - Headache [None]
  - Somnolence [None]
  - Dizziness [None]
  - Muscular weakness [None]

NARRATIVE: CASE EVENT DATE: 20200506
